FAERS Safety Report 22679183 (Version 7)
Quarter: 2023Q4

REPORT INFORMATION
  Report Type: Report from Study
  Country: US (occurrence: US)
  Receive Date: 20230706
  Receipt Date: 20231102
  Transmission Date: 20240109
  Serious: Yes (Hospitalization, Other)
  Sender: FDA-Public Use
  Company Number: US-JNJFOC-20220816758

PATIENT
  Age: 50 Year
  Sex: Female
  Weight: 73.6 kg

DRUGS (11)
  1. SELEXIPAG [Suspect]
     Active Substance: SELEXIPAG
     Indication: Pulmonary arterial hypertension
     Route: 048
  2. SELEXIPAG [Suspect]
     Active Substance: SELEXIPAG
     Route: 048
  3. SELEXIPAG [Suspect]
     Active Substance: SELEXIPAG
     Route: 048
  4. SELEXIPAG [Suspect]
     Active Substance: SELEXIPAG
     Dosage: 800 MCG AM AND 1000 MCG PM
     Route: 048
  5. SELEXIPAG [Suspect]
     Active Substance: SELEXIPAG
     Dosage: 800 MCG ORALLY 2 TIMES DAILY, UPTRAVI 200 MCG ORALLY 2 TIMES DAILY (UPTRAVI DOSE 800MCG IN AM USES O
     Route: 048
  6. SELEXIPAG [Suspect]
     Active Substance: SELEXIPAG
     Route: 048
  7. SPIRONOLACTONE [Suspect]
     Active Substance: SPIRONOLACTONE
     Indication: Product used for unknown indication
     Route: 065
  8. TADALAFIL [Suspect]
     Active Substance: TADALAFIL
     Indication: Product used for unknown indication
     Route: 065
  9. AMBRISENTAN [Concomitant]
     Active Substance: AMBRISENTAN
     Indication: Product used for unknown indication
     Route: 065
  10. OPSUMIT [Concomitant]
     Active Substance: MACITENTAN
  11. SILDENAFIL CITRATE [Concomitant]
     Active Substance: SILDENAFIL CITRATE

REACTIONS (50)
  - Pulmonary arterial hypertension [Unknown]
  - Hospitalisation [Unknown]
  - Oedema peripheral [Unknown]
  - Localised infection [Unknown]
  - Loss of consciousness [Unknown]
  - Seizure [Unknown]
  - Blood potassium decreased [Unknown]
  - Cerebrovascular accident [Unknown]
  - Syncope [Unknown]
  - Pain in jaw [Unknown]
  - Epistaxis [Unknown]
  - Sneezing [Unknown]
  - Oxygen saturation decreased [Unknown]
  - Fatigue [Unknown]
  - Infusion site infection [Unknown]
  - Dyspepsia [Recovered/Resolved]
  - Abdominal pain upper [Unknown]
  - Flatulence [Unknown]
  - Peripheral swelling [Unknown]
  - Cough [Unknown]
  - Pain in extremity [Unknown]
  - Headache [Recovering/Resolving]
  - Chest pain [Recovered/Resolved]
  - Vomiting [Recovered/Resolved]
  - Oedema [Unknown]
  - Pain in extremity [Unknown]
  - Abdominal discomfort [Unknown]
  - Nausea [Not Recovered/Not Resolved]
  - Arthralgia [Unknown]
  - Myalgia [Unknown]
  - Paraesthesia [Unknown]
  - Flushing [Unknown]
  - Pain in extremity [Unknown]
  - Inflammation [Unknown]
  - Erythema [Unknown]
  - Dizziness [Recovered/Resolved]
  - Dyspnoea [Not Recovered/Not Resolved]
  - Somnolence [Unknown]
  - Back pain [Not Recovered/Not Resolved]
  - Arthralgia [Unknown]
  - Throat irritation [Unknown]
  - Sunburn [Unknown]
  - Sleep apnoea syndrome [Unknown]
  - Weight decreased [Unknown]
  - Sinus congestion [Unknown]
  - Rhinorrhoea [Unknown]
  - Seasonal allergy [Unknown]
  - Cardiac disorder [Unknown]
  - Decreased appetite [Unknown]
  - Feeling cold [Unknown]

NARRATIVE: CASE EVENT DATE: 20220801
